FAERS Safety Report 16950452 (Version 1)
Quarter: 2019Q4

REPORT INFORMATION
  Report Type: Spontaneous
  Country: NZ (occurrence: NZ)
  Receive Date: 20191023
  Receipt Date: 20191023
  Transmission Date: 20200122
  Serious: Yes (Hospitalization, Other)
  Sender: FDA-Public Use
  Company Number: NZ-SUN PHARMACEUTICAL INDUSTRIES LTD-2019R1-224825

PATIENT
  Age: 65 Year
  Sex: Male

DRUGS (4)
  1. PREDNISONE. [Suspect]
     Active Substance: PREDNISONE
     Dosage: REDUCED TO 20 MG/DAY
     Route: 065
  2. PREDNISONE. [Suspect]
     Active Substance: PREDNISONE
     Indication: IMMUNOSUPPRESSION
     Dosage: UNK
     Route: 065
  3. MYCOPHENOLATE [Suspect]
     Active Substance: MYCOPHENOLIC ACID
     Indication: IMMUNOSUPPRESSION
     Dosage: UNK
     Route: 065
  4. TACROLIMUS. [Suspect]
     Active Substance: TACROLIMUS
     Indication: IMMUNOSUPPRESSION
     Dosage: UNK
     Route: 065

REACTIONS (8)
  - Sinusitis bacterial [Recovered/Resolved]
  - Neutropenic sepsis [Recovering/Resolving]
  - Rash maculo-papular [Recovered/Resolved]
  - Cytomegalovirus infection [Recovering/Resolving]
  - Pseudomonas test positive [Recovering/Resolving]
  - Diarrhoea [Recovering/Resolving]
  - Skin necrosis [Recovering/Resolving]
  - Colitis [Recovered/Resolved]
